FAERS Safety Report 24393587 (Version 1)
Quarter: 2024Q4

REPORT INFORMATION
  Report Type: Spontaneous
  Country: US (occurrence: US)
  Receive Date: 20241003
  Receipt Date: 20241003
  Transmission Date: 20250114
  Serious: Yes (Hospitalization)
  Sender: CALLIDITAS THERAPEUTICS
  Company Number: US-Calliditas-2024CAL01940

PATIENT
  Age: 29 Year
  Sex: Female
  Weight: 39.8 kg

DRUGS (24)
  1. TARPEYO [Suspect]
     Active Substance: BUDESONIDE
     Indication: IgA nephropathy
     Route: 048
     Dates: start: 20240626
  2. ACETAMINOPHEN [Concomitant]
     Active Substance: ACETAMINOPHEN
  3. ACYCLOVIR [Concomitant]
     Active Substance: ACYCLOVIR
  4. ATOVAQUONE [Concomitant]
     Active Substance: ATOVAQUONE
  5. CALCIUM CARBONATE [Concomitant]
     Active Substance: CALCIUM CARBONATE
  6. ERGOCALCIFEROL [Concomitant]
     Active Substance: ERGOCALCIFEROL
  7. FOLIC ACID [Concomitant]
     Active Substance: FOLIC ACID
  8. FERROUS SULFATE [Concomitant]
     Active Substance: FERROUS SULFATE
  9. MAGNESIUM OXIDE [Concomitant]
     Active Substance: MAGNESIUM OXIDE
  10. HEPARIN [Concomitant]
     Active Substance: HEPARIN SODIUM
  11. PREVACID [Concomitant]
     Active Substance: LANSOPRAZOLE
  12. PREVYMIS [Concomitant]
     Active Substance: LETERMOVIR
  13. ZENPEP [Concomitant]
     Active Substance: PANCRELIPASE AMYLASE\PANCRELIPASE LIPASE\PANCRELIPASE PROTEASE
  14. MELATONIN [Concomitant]
     Active Substance: MELATONIN
  15. METOPROLOL [Concomitant]
     Active Substance: METOPROLOL
  16. REMERON [Concomitant]
     Active Substance: MIRTAZAPINE
  17. VITAMINS NOS [Concomitant]
     Active Substance: VITAMINS
  18. ONDANSETRON [Concomitant]
     Active Substance: ONDANSETRON
  19. NOXAFIL [Concomitant]
     Active Substance: POSACONAZOLE
  20. PREDNISONE [Concomitant]
     Active Substance: PREDNISONE
  21. SENNA LEAF [Concomitant]
     Active Substance: SENNA LEAF
  22. SODIUM CHLORIDE [Concomitant]
     Active Substance: SODIUM CHLORIDE
  23. TACROLIMUS [Concomitant]
     Active Substance: TACROLIMUS
  24. TACROLIMUS [Concomitant]
     Active Substance: TACROLIMUS

REACTIONS (2)
  - Hospitalisation [Unknown]
  - Prescribed underdose [Unknown]
